FAERS Safety Report 5500182-4 (Version None)
Quarter: 2007Q4

REPORT INFORMATION
  Report Type: 
  Country: None (occurrence: None)
  Receive Date: 20071025
  Receipt Date: 20071019
  Transmission Date: 20080405
  Serious: Yes (Hospitalization)
  Sender: FDA-Public Use
  Company Number: 2007BI022326

PATIENT
  Age: 53 Year
  Sex: Female
  Weight: 66 kg

DRUGS (3)
  1. AVONEX [Suspect]
     Indication: MULTIPLE SCLEROSIS
     Dosage: 30 UG; QW; IM
     Route: 030
     Dates: start: 20001101
  2. LEVOTHYROXINE SODIUM [Concomitant]
  3. IBUPROFEN [Concomitant]

REACTIONS (12)
  - ARTHRITIS [None]
  - BACK PAIN [None]
  - CROHN'S DISEASE [None]
  - GAIT DISTURBANCE [None]
  - GROIN PAIN [None]
  - MENOPAUSAL DISORDER [None]
  - MUSCLE STRAIN [None]
  - PAIN IN EXTREMITY [None]
  - PARESIS [None]
  - RESTLESS LEGS SYNDROME [None]
  - SPINAL DISORDER [None]
  - TENDON DISORDER [None]
